FAERS Safety Report 5740681-3 (Version None)
Quarter: 2008Q2

REPORT INFORMATION
  Report Type: 
  Country: None (occurrence: None)
  Receive Date: 20080516
  Receipt Date: 20080507
  Transmission Date: 20081010
  Serious: Yes (Hospitalization)
  Sender: FDA-Public Use
  Company Number: US-AMGEN-QUU278015

PATIENT
  Sex: Male

DRUGS (1)
  1. ENBREL [Suspect]
     Indication: RHEUMATOID ARTHRITIS

REACTIONS (4)
  - ATAXIA [None]
  - HEMIPARESIS [None]
  - HYPERREFLEXIA [None]
  - NUCLEAR MAGNETIC RESONANCE IMAGING BRAIN ABNORMAL [None]
